FAERS Safety Report 6075363-4 (Version None)
Quarter: 2009Q1

REPORT INFORMATION
  Report Type: 
  Country: None (occurrence: None)
  Receive Date: 20090212
  Receipt Date: 20090206
  Transmission Date: 20090719
  Serious: Yes (Other)
  Sender: FDA-Public Use
  Company Number: ES-ABBOTT-08P-144-0480105-00

PATIENT
  Age: 35 Year
  Sex: Female

DRUGS (4)
  1. HUMIRA [Suspect]
     Indication: CROHN'S DISEASE
     Route: 058
     Dates: start: 20080129, end: 20080701
  2. HUMIRA [Suspect]
     Route: 058
  3. EDANEC [Concomitant]
     Indication: NUTRITIONAL SUPPORT
     Dates: start: 20080415
  4. METILPREDNISOLONE [Concomitant]
     Indication: CROHN'S DISEASE
     Route: 048
     Dates: start: 20080226, end: 20080416

REACTIONS (4)
  - CROHN'S DISEASE [None]
  - MALAISE [None]
  - PRE-ECLAMPSIA [None]
  - PREMATURE LABOUR [None]
